FAERS Safety Report 6915459-5 (Version None)
Quarter: 2010Q3

REPORT INFORMATION
  Report Type: 
  Country: None (occurrence: None)
  Receive Date: 20100809
  Receipt Date: 20100701
  Transmission Date: 20110219
  Serious: No
  Sender: FDA-Public Use
  Company Number: US-ABBOTT-10P-163-0655583-00

PATIENT
  Sex: Male

DRUGS (3)
  1. DEPAKOTE ER [Suspect]
     Indication: NERVOUS SYSTEM DISORDER
     Dates: start: 20080101
  2. DEPAKOTE ER [Suspect]
  3. DEPAKOTE ER [Suspect]
     Dates: start: 20100601

REACTIONS (1)
  - DRUG LEVEL DECREASED [None]
